FAERS Safety Report 10486700 (Version 1)
Quarter: 2014Q3

REPORT INFORMATION
  Report Type: Spontaneous
  Country: US (occurrence: None)
  Receive Date: 20140930
  Receipt Date: 20140930
  Transmission Date: 20150326
  Serious: No
  Sender: FDA-Public Use
  Company Number: None

PATIENT
  Age: 25 Year
  Sex: Male
  Weight: 63.5 kg

DRUGS (1)
  1. DOTERRA ONGUARD FOAMING HANDSWASG [Suspect]
     Active Substance: COSMETICS

REACTIONS (1)
  - Product label issue [None]
